FAERS Safety Report 17376212 (Version 2)
Quarter: 2020Q1

REPORT INFORMATION
  Report Type: Spontaneous
  Country: ES (occurrence: ES)
  Receive Date: 20200206
  Receipt Date: 20200304
  Transmission Date: 20200409
  Serious: Yes (Hospitalization)
  Sender: FDA-Public Use
  Company Number: ES-TEVA-2020-ES-1182381

PATIENT
  Age: 77 Year
  Sex: Female

DRUGS (11)
  1. CARBOPLATINO (2323A) [Suspect]
     Active Substance: CARBOPLATIN
     Indication: OVARIAN CANCER
     Route: 042
     Dates: start: 201901, end: 201904
  2. GEMCITABINA (7314A) [Suspect]
     Active Substance: GEMCITABINE HYDROCHLORIDE
     Indication: OVARIAN CANCER
     Route: 042
     Dates: start: 201904, end: 201904
  3. CISPLATINO (644A) [Suspect]
     Active Substance: CISPLATIN
     Indication: OVARIAN CANCER
     Route: 042
     Dates: start: 201908, end: 201908
  4. CARBOPLATINO (2323A) [Suspect]
     Active Substance: CARBOPLATIN
     Route: 042
     Dates: start: 201906, end: 201907
  5. OMEPRAZOLE. [Concomitant]
     Active Substance: OMEPRAZOLE
     Indication: ILL-DEFINED DISORDER
     Route: 048
     Dates: start: 20191213
  6. CAELYX [Suspect]
     Active Substance: DOXORUBICIN HYDROCHLORIDE
     Indication: OVARIAN CANCER
     Route: 042
     Dates: start: 20170421, end: 201709
  7. LYNPARZA [Suspect]
     Active Substance: OLAPARIB
     Indication: OVARIAN CANCER
     Dosage: 250 MG
     Route: 048
     Dates: start: 20191212, end: 20191230
  8. LYNPARZA [Suspect]
     Active Substance: OLAPARIB
     Route: 048
     Dates: start: 20190911, end: 20191212
  9. PREDNISONE. [Concomitant]
     Active Substance: PREDNISONE
     Indication: ASTHENIA
     Dates: start: 20191213, end: 20200204
  10. CARBOPLATINO (2323A) [Suspect]
     Active Substance: CARBOPLATIN
     Route: 042
     Dates: start: 20170421, end: 201709
  11. CAELYX [Suspect]
     Active Substance: DOXORUBICIN HYDROCHLORIDE
     Route: 042
     Dates: start: 201901, end: 201903

REACTIONS (1)
  - Acute myeloid leukaemia [Unknown]

NARRATIVE: CASE EVENT DATE: 20200101
